FAERS Safety Report 6567763-0 (Version None)
Quarter: 2010Q1

REPORT INFORMATION
  Report Type: 
  Country: None (occurrence: None)
  Receive Date: 20100203
  Receipt Date: 20100127
  Transmission Date: 20100710
  Serious: Yes (Other)
  Sender: FDA-Public Use
  Company Number: GB-ASTRAZENECA-2010SE03659

PATIENT
  Age: 55 Year
  Sex: Male
  Weight: 55 kg

DRUGS (1)
  1. MEROPENEM TRIHYDRATE [Suspect]
     Indication: URINARY TRACT INFECTION
     Route: 042
     Dates: start: 20100115, end: 20100115

REACTIONS (5)
  - DRUG HYPERSENSITIVITY [None]
  - FEELING ABNORMAL [None]
  - FEELING HOT [None]
  - RASH [None]
  - TACHYCARDIA [None]
